FAERS Safety Report 8129428-3 (Version None)
Quarter: 2012Q1

REPORT INFORMATION
  Report Type: 
  Country: None (occurrence: None)
  Receive Date: 20120210
  Receipt Date: 20120207
  Transmission Date: 20120608
  Serious: Yes (Death, Other)
  Sender: FDA-Public Use
  Company Number: PHHY2012CH010235

PATIENT
  Age: 65 Year
  Sex: Male

DRUGS (2)
  1. PIPERACILLIN AND TAZOBACTAM [Concomitant]
     Indication: PNEUMONIA
  2. METHYLPREDNISOLONE [Suspect]
     Indication: ACUTE RESPIRATORY DISTRESS SYNDROME
     Dosage: 2 MG/KG/DAY

REACTIONS (7)
  - ZYGOMYCOSIS [None]
  - MULTI-ORGAN FAILURE [None]
  - SEPSIS [None]
  - MACULE [None]
  - METABOLIC ACIDOSIS [None]
  - VASOPLEGIA SYNDROME [None]
  - BLOOD CREATINE PHOSPHOKINASE INCREASED [None]
